FAERS Safety Report 25750241 (Version 2)
Quarter: 2025Q3

REPORT INFORMATION
  Report Type: Spontaneous
  Country: EU (occurrence: EU)
  Receive Date: 20250902
  Receipt Date: 20250908
  Transmission Date: 20251020
  Serious: Yes (Disabling, Other)
  Sender: MYLAN
  Company Number: EU-MYLANLABS-2025M1074179

PATIENT
  Sex: Male

DRUGS (24)
  1. DYMISTA [Suspect]
     Active Substance: AZELASTINE HYDROCHLORIDE\FLUTICASONE PROPIONATE
     Indication: Rhinitis allergic
  2. DYMISTA [Suspect]
     Active Substance: AZELASTINE HYDROCHLORIDE\FLUTICASONE PROPIONATE
  3. DYMISTA [Suspect]
     Active Substance: AZELASTINE HYDROCHLORIDE\FLUTICASONE PROPIONATE
     Route: 064
  4. DYMISTA [Suspect]
     Active Substance: AZELASTINE HYDROCHLORIDE\FLUTICASONE PROPIONATE
     Route: 064
  5. DYMISTA [Suspect]
     Active Substance: AZELASTINE HYDROCHLORIDE\FLUTICASONE PROPIONATE
  6. DYMISTA [Suspect]
     Active Substance: AZELASTINE HYDROCHLORIDE\FLUTICASONE PROPIONATE
  7. DYMISTA [Suspect]
     Active Substance: AZELASTINE HYDROCHLORIDE\FLUTICASONE PROPIONATE
     Route: 064
  8. DYMISTA [Suspect]
     Active Substance: AZELASTINE HYDROCHLORIDE\FLUTICASONE PROPIONATE
     Route: 064
  9. BETULA PENDULA POLLEN [Suspect]
     Active Substance: BETULA PENDULA POLLEN
     Indication: Product used for unknown indication
     Dates: start: 20231003, end: 20250113
  10. BETULA PENDULA POLLEN [Suspect]
     Active Substance: BETULA PENDULA POLLEN
     Dates: start: 20231003, end: 20250113
  11. BETULA PENDULA POLLEN [Suspect]
     Active Substance: BETULA PENDULA POLLEN
     Route: 064
     Dates: start: 20231003, end: 20250113
  12. BETULA PENDULA POLLEN [Suspect]
     Active Substance: BETULA PENDULA POLLEN
     Route: 064
     Dates: start: 20231003, end: 20250113
  13. BETULA PENDULA POLLEN [Suspect]
     Active Substance: BETULA PENDULA POLLEN
     Dates: start: 20231003, end: 20250113
  14. BETULA PENDULA POLLEN [Suspect]
     Active Substance: BETULA PENDULA POLLEN
     Dates: start: 20231003, end: 20250113
  15. BETULA PENDULA POLLEN [Suspect]
     Active Substance: BETULA PENDULA POLLEN
     Route: 064
     Dates: start: 20231003, end: 20250113
  16. BETULA PENDULA POLLEN [Suspect]
     Active Substance: BETULA PENDULA POLLEN
     Route: 064
     Dates: start: 20231003, end: 20250113
  17. GRAZAX [Suspect]
     Active Substance: PHLEUM PRATENSE POLLEN
     Indication: Product used for unknown indication
     Dates: start: 20231122, end: 20250113
  18. GRAZAX [Suspect]
     Active Substance: PHLEUM PRATENSE POLLEN
     Dates: start: 20231122, end: 20250113
  19. GRAZAX [Suspect]
     Active Substance: PHLEUM PRATENSE POLLEN
     Route: 064
     Dates: start: 20231122, end: 20250113
  20. GRAZAX [Suspect]
     Active Substance: PHLEUM PRATENSE POLLEN
     Route: 064
     Dates: start: 20231122, end: 20250113
  21. GRAZAX [Suspect]
     Active Substance: PHLEUM PRATENSE POLLEN
     Dates: start: 20231122, end: 20250113
  22. GRAZAX [Suspect]
     Active Substance: PHLEUM PRATENSE POLLEN
     Dates: start: 20231122, end: 20250113
  23. GRAZAX [Suspect]
     Active Substance: PHLEUM PRATENSE POLLEN
     Route: 064
     Dates: start: 20231122, end: 20250113
  24. GRAZAX [Suspect]
     Active Substance: PHLEUM PRATENSE POLLEN
     Route: 064
     Dates: start: 20231122, end: 20250113

REACTIONS (2)
  - Cleft lip and palate [Unknown]
  - Foetal exposure during pregnancy [Recovered/Resolved]

NARRATIVE: CASE EVENT DATE: 20250101
